FAERS Safety Report 15354533 (Version 2)
Quarter: 2024Q2

REPORT INFORMATION
  Report Type: Other
  Country: CA (occurrence: None)
  Receive Date: 20180906
  Receipt Date: 20240529
  Transmission Date: 20240715
  Serious: No
  Sender: FDA-Public Use
  Company Number: CA-ROCHE-2180967

PATIENT
  Sex: Female

DRUGS (1)
  1. OCREVUS [Suspect]
     Active Substance: OCRELIZUMAB
     Indication: Relapsing-remitting multiple sclerosis
     Dosage: LIQUID 300MG DAY 0, 300MG DAY 14, THEN 600MG EVERY  6MONTHS
     Route: 042
     Dates: start: 20180220

REACTIONS (1)
  - Nasopharyngitis [Not Recovered/Not Resolved]
